FAERS Safety Report 5499903-9 (Version None)
Quarter: 2007Q4

REPORT INFORMATION
  Report Type: 
  Country: None (occurrence: None)
  Receive Date: 20071026
  Receipt Date: 20071016
  Transmission Date: 20080405
  Serious: Yes (Other)
  Sender: FDA-Public Use
  Company Number: GB-PFIZER INC-2007087372

PATIENT
  Age: 63 Year
  Sex: Female

DRUGS (2)
  1. CHAMPIX [Suspect]
     Route: 048
  2. ANTIHYPERTENSIVES [Concomitant]

REACTIONS (1)
  - BLOOD PRESSURE INCREASED [None]
